FAERS Safety Report 6888784-4 (Version None)
Quarter: 2010Q3

REPORT INFORMATION
  Report Type: 
  Country: None (occurrence: None)
  Receive Date: 20100730
  Receipt Date: 20071011
  Transmission Date: 20110219
  Serious: No
  Sender: FDA-Public Use
  Company Number: US-PFIZER INC-2007092057

PATIENT
  Sex: Female

DRUGS (3)
  1. LIPITOR [Suspect]
     Indication: LOW DENSITY LIPOPROTEIN INCREASED
  2. ALL OTHER THERAPEUTIC PRODUCTS [Concomitant]
     Dosage: 50/25MG
  3. ALLEGRA [Concomitant]

REACTIONS (2)
  - DRY MOUTH [None]
  - PARAESTHESIA [None]
